FAERS Safety Report 23878783 (Version 1)
Quarter: 2024Q2

REPORT INFORMATION
  Report Type: Spontaneous
  Country: GB (occurrence: GB)
  Receive Date: 20240521
  Receipt Date: 20240521
  Transmission Date: 20240716
  Serious: Yes (Other)
  Sender: FDA-Public Use
  Company Number: None

PATIENT
  Age: 78 Year
  Sex: Female
  Weight: 57 kg

DRUGS (17)
  1. TRAMADOL [Suspect]
     Active Substance: TRAMADOL\TRAMADOL HYDROCHLORIDE
     Route: 065
  2. ATORVASTATIN [Concomitant]
     Active Substance: ATORVASTATIN
     Dosage: AS PREVIOUSLY ADVISED
     Dates: start: 20231128
  3. NITROGLYCERIN [Concomitant]
     Active Substance: NITROGLYCERIN
     Dosage: TIME INTERVAL: AS NECESSARY
     Route: 055
     Dates: start: 20230606
  4. ASPIRIN [Concomitant]
     Active Substance: ASPIRIN
     Dates: start: 20230606
  5. BUTRANS [Concomitant]
     Active Substance: BUPRENORPHINE
     Dates: start: 20240430
  6. GABAPENTIN [Concomitant]
     Active Substance: GABAPENTIN
     Dosage: TIME INTERVAL: 0.33333333 DAYS
     Dates: start: 20240322
  7. ZEROCREAM [Concomitant]
     Dosage: APPLY AS NEEDED
     Dates: start: 20230606
  8. IBUPROFEN [Concomitant]
     Active Substance: IBUPROFEN
     Dosage: APPLY 3-4 TIMES/DAY
     Dates: start: 20240422
  9. ACETAMINOPHEN [Concomitant]
     Active Substance: ACETAMINOPHEN
     Dosage: TAKE 1 OR 2 4 TIMES/DAY
     Dates: start: 20230320
  10. ADCAL [Concomitant]
     Dates: start: 20230606
  11. AMITRIPTYLINE HYDROCHLORIDE [Concomitant]
     Active Substance: AMITRIPTYLINE HYDROCHLORIDE
     Dosage: AT NIGHT
     Dates: start: 20240408
  12. DICLOFENAC DIETHYLAMINE [Concomitant]
     Active Substance: DICLOFENAC DIETHYLAMINE
     Dates: start: 20240408
  13. LANSOPRAZOLE [Concomitant]
     Active Substance: LANSOPRAZOLE
     Dates: start: 20230606
  14. EZETIMIBE [Concomitant]
     Active Substance: EZETIMIBE
     Dates: start: 20230606
  15. BISOPROLOL [Concomitant]
     Active Substance: BISOPROLOL\BISOPROLOL FUMARATE
     Dates: start: 20230606
  16. UNSPECIFIED INGREDIENT [Concomitant]
     Active Substance: UNSPECIFIED INGREDIENT
     Dates: start: 20230606
  17. LOSARTAN [Concomitant]
     Active Substance: LOSARTAN
     Dates: start: 20230606

REACTIONS (1)
  - Hypersensitivity [Recovered/Resolved]
